FAERS Safety Report 24748840 (Version 1)
Quarter: 2024Q4

REPORT INFORMATION
  Report Type: Report from Study
  Country: SE (occurrence: SE)
  Receive Date: 20241218
  Receipt Date: 20241218
  Transmission Date: 20250115
  Serious: Yes (Other)
  Sender: BAYER HEALTHCARE PHARMACEUTICALS INC.
  Company Number: SE-BAYER-2024A177061

PATIENT
  Age: 33 Year
  Sex: Female

DRUGS (1)
  1. MIRENA [Suspect]
     Active Substance: LEVONORGESTREL
     Dosage: 20?G/DAY
     Route: 015
     Dates: start: 20241203, end: 20241203

REACTIONS (4)
  - Uterine perforation [Recovered/Resolved]
  - Uterine infection [Recovered/Resolved]
  - Complication of device insertion [None]
  - Device physical property issue [None]

NARRATIVE: CASE EVENT DATE: 20241203
